FAERS Safety Report 13132019 (Version 10)
Quarter: 2018Q1

REPORT INFORMATION
  Report Type: Spontaneous
  Country: US (occurrence: US)
  Receive Date: 20170119
  Receipt Date: 20180207
  Transmission Date: 20180508
  Serious: Yes (Hospitalization)
  Sender: FDA-Public Use
  Company Number: US-ACTELION-A-US2017-148443

PATIENT
  Age: 78 Year
  Sex: Female

DRUGS (17)
  1. GABAPENTIN. [Concomitant]
     Active Substance: GABAPENTIN
  2. VELETRI [Suspect]
     Active Substance: EPOPROSTENOL
     Indication: PULMONARY ARTERIAL HYPERTENSION
     Dosage: 13 NG/KG, PER MIN
     Route: 042
     Dates: start: 20151113
  3. WARFARIN [Concomitant]
     Active Substance: WARFARIN
     Dosage: 1 MG, Q MON AND FRI
  4. LEVOTHYROXINE. [Concomitant]
     Active Substance: LEVOTHYROXINE
  5. VITAMIN D [Concomitant]
     Active Substance: CHOLECALCIFEROL
  6. PAROXETINE. [Concomitant]
     Active Substance: PAROXETINE
  7. SYNTHROID [Concomitant]
     Active Substance: LEVOTHYROXINE SODIUM
     Dosage: 25 MG, QD
  8. VELETRI [Suspect]
     Active Substance: EPOPROSTENOL
     Dosage: 10 NG/KG, PER MIN
     Route: 042
     Dates: start: 20151106
  9. CYCLOBENZAPRINE. [Concomitant]
     Active Substance: CYCLOBENZAPRINE
  10. LASIX [Concomitant]
     Active Substance: FUROSEMIDE
     Dosage: 40 MG, QAM
  11. POTASSIUM [Concomitant]
     Active Substance: POTASSIUM
  12. BUSPIRONE [Concomitant]
     Active Substance: BUSPIRONE HYDROCHLORIDE
  13. NEURONTIN [Concomitant]
     Active Substance: GABAPENTIN
     Dosage: 200 MG, TID
  14. MAGNESIUM [Concomitant]
     Active Substance: MAGNESIUM
  15. OPSUMIT [Suspect]
     Active Substance: MACITENTAN
     Indication: PULMONARY ARTERIAL HYPERTENSION
     Dosage: 10 MG, UNK
     Route: 048
     Dates: start: 20150702, end: 201708
  16. WARFARIN [Concomitant]
     Active Substance: WARFARIN
     Dosage: 2 MG, Q TUES, THURS, SAT, SUN
  17. LANSOPRAZOLE. [Concomitant]
     Active Substance: LANSOPRAZOLE

REACTIONS (12)
  - Portal hypertension [Recovering/Resolving]
  - Condition aggravated [Recovering/Resolving]
  - Faeces discoloured [Not Recovered/Not Resolved]
  - Portal hypertensive gastropathy [Recovering/Resolving]
  - Abdominal pain [Recovered/Resolved]
  - Hypotension [Recovered/Resolved]
  - Right ventricular failure [Not Recovered/Not Resolved]
  - Dyspnoea [Unknown]
  - Hypoxia [Recovering/Resolving]
  - Oxygen saturation decreased [Recovered/Resolved]
  - Gastrointestinal haemorrhage [Not Recovered/Not Resolved]
  - Splenomegaly [Not Recovered/Not Resolved]

NARRATIVE: CASE EVENT DATE: 20170303
